FAERS Safety Report 21656181 (Version 1)
Quarter: 2022Q4

REPORT INFORMATION
  Report Type: Spontaneous
  Country: DE (occurrence: DE)
  Receive Date: 20221129
  Receipt Date: 20221129
  Transmission Date: 20230112
  Serious: Yes (Hospitalization)
  Sender: FDA-Public Use
  Company Number: DE-JNJFOC-20220924436

PATIENT
  Age: 82 Year
  Sex: Male
  Weight: 65 kg

DRUGS (28)
  1. LENALIDOMIDE [Suspect]
     Active Substance: LENALIDOMIDE
     Indication: Plasma cell myeloma
     Dosage: 15 MG, EVERY 21 DAYS
     Route: 048
     Dates: start: 20220721, end: 20220803
  2. LENALIDOMIDE [Suspect]
     Active Substance: LENALIDOMIDE
     Dosage: 15 MG, EVERY 21 DAYS
     Route: 048
     Dates: start: 20220822, end: 20220907
  3. LENALIDOMIDE [Suspect]
     Active Substance: LENALIDOMIDE
     Dosage: 10 MG, EVERY 21 DAYS
     Route: 048
     Dates: start: 20220927, end: 20221017
  4. LENALIDOMIDE [Suspect]
     Active Substance: LENALIDOMIDE
     Dosage: 10 MG, EVERY 21 DAYS
     Route: 048
     Dates: start: 20221025
  5. DEXAMETHASONE [Suspect]
     Active Substance: DEXAMETHASONE
     Indication: Plasma cell myeloma
     Dosage: 20 MG, QW
     Route: 048
     Dates: start: 20220721
  6. DEXAMETHASONE [Suspect]
     Active Substance: DEXAMETHASONE
     Dosage: 20 MG, QW
     Route: 048
     Dates: start: 20220728
  7. DEXAMETHASONE [Suspect]
     Active Substance: DEXAMETHASONE
     Dosage: 20 MG, QW
     Route: 048
     Dates: start: 20220822
  8. DEXAMETHASONE [Suspect]
     Active Substance: DEXAMETHASONE
     Dosage: 20 MG, QW
     Route: 048
     Dates: start: 20220829
  9. DEXAMETHASONE [Suspect]
     Active Substance: DEXAMETHASONE
     Dosage: 20 MG, QW
     Route: 048
     Dates: start: 20220905
  10. DEXAMETHASONE [Suspect]
     Active Substance: DEXAMETHASONE
     Dosage: 20 MG, QW
     Route: 042
     Dates: start: 20220927
  11. DEXAMETHASONE [Suspect]
     Active Substance: DEXAMETHASONE
     Dosage: 20 MG, QW
     Route: 048
     Dates: start: 20221004
  12. DEXAMETHASONE [Suspect]
     Active Substance: DEXAMETHASONE
     Dosage: 20 MG, QW
     Route: 042
     Dates: start: 20221011
  13. DEXAMETHASONE [Suspect]
     Active Substance: DEXAMETHASONE
     Dosage: 20 MG, QW
     Route: 048
     Dates: start: 20221018
  14. DEXAMETHASONE [Suspect]
     Active Substance: DEXAMETHASONE
     Dosage: 20 MG, QW
     Route: 042
     Dates: start: 20221025
  15. DEXAMETHASONE [Suspect]
     Active Substance: DEXAMETHASONE
     Dosage: 20 MG, QW
     Route: 042
     Dates: start: 20221108
  16. DARZALEX [Suspect]
     Active Substance: DARATUMUMAB
     Indication: Plasma cell myeloma
     Dosage: 1800 MG, QW
     Route: 058
     Dates: start: 20220721
  17. DARZALEX [Suspect]
     Active Substance: DARATUMUMAB
     Dosage: 1800 MG, QW
     Route: 058
     Dates: start: 20220728
  18. DARZALEX [Suspect]
     Active Substance: DARATUMUMAB
     Dosage: 1800 MG, QW
     Route: 058
     Dates: start: 20220822
  19. DARZALEX [Suspect]
     Active Substance: DARATUMUMAB
     Dosage: 1800 MG, QW
     Route: 058
     Dates: start: 20220829
  20. DARZALEX [Suspect]
     Active Substance: DARATUMUMAB
     Dosage: 1800 MG, QW
     Route: 058
     Dates: start: 20220905
  21. DARZALEX [Suspect]
     Active Substance: DARATUMUMAB
     Dosage: 1800 MG, QW
     Route: 058
     Dates: start: 20220927
  22. DARZALEX [Suspect]
     Active Substance: DARATUMUMAB
     Dosage: 1800 MG, QW
     Route: 058
     Dates: start: 20221011
  23. DARZALEX [Suspect]
     Active Substance: DARATUMUMAB
     Dosage: 1800 MG, QW
     Route: 058
     Dates: start: 20221025
  24. DARZALEX [Suspect]
     Active Substance: DARATUMUMAB
     Dosage: 1800 MG, QW
     Route: 058
     Dates: start: 20221108
  25. PAMIDRONATE [Concomitant]
     Active Substance: PAMIDRONATE DISODIUM
     Indication: Osteolysis
     Dosage: 60 MG, QMO
     Route: 042
     Dates: start: 20220715
  26. DAPAGLIFLOZIN [Concomitant]
     Active Substance: DAPAGLIFLOZIN
     Indication: Chronic kidney disease
     Dosage: 10 MG, QD
     Route: 048
  27. TORSEMIDE [Concomitant]
     Active Substance: TORSEMIDE
     Indication: Hypertension
     Dosage: 5 MG, QD
     Route: 048
  28. METFORMIN [Concomitant]
     Active Substance: METFORMIN HYDROCHLORIDE
     Indication: Type 2 diabetes mellitus
     Dosage: 1000 MG (0.5 DAY)
     Route: 048

REACTIONS (1)
  - COVID-19 [Recovered/Resolved]

NARRATIVE: CASE EVENT DATE: 20220907
